FAERS Safety Report 11923487 (Version 1)
Quarter: 2016Q1

REPORT INFORMATION
  Report Type: Spontaneous
  Country: US (occurrence: US)
  Receive Date: 20160118
  Receipt Date: 20160118
  Transmission Date: 20160526
  Serious: Yes (Other)
  Sender: FDA-Public Use
  Company Number: US-ELI_LILLY_AND_COMPANY-US201601002154

PATIENT
  Sex: Female

DRUGS (5)
  1. ZYPREXA [Suspect]
     Active Substance: OLANZAPINE
     Dosage: UNK UNK, UNKNOWN
     Route: 065
     Dates: start: 2014
  2. LORAZEPAM. [Concomitant]
     Active Substance: LORAZEPAM
     Indication: ANXIETY
     Dosage: UNK, UNKNOWN
     Route: 065
  3. ZYPREXA [Suspect]
     Active Substance: OLANZAPINE
     Indication: ANXIETY
     Dosage: 5 MG, BID
     Route: 065
     Dates: start: 1986, end: 2006
  4. ZYPREXA [Suspect]
     Active Substance: OLANZAPINE
     Dosage: UNK, OTHER
     Route: 065
  5. ZYPREXA [Suspect]
     Active Substance: OLANZAPINE
     Dosage: 5 MG, QD
     Route: 065
     Dates: end: 2014

REACTIONS (10)
  - Weight increased [Unknown]
  - Myalgia [Unknown]
  - Anxiety [Unknown]
  - Drug withdrawal syndrome [Unknown]
  - Hypertension [Unknown]
  - Glucose tolerance impaired [Unknown]
  - Off label use [Unknown]
  - Social anxiety disorder [Unknown]
  - Intentional product misuse [Unknown]
  - Arthralgia [Unknown]

NARRATIVE: CASE EVENT DATE: 2006
